FAERS Safety Report 5736548-7 (Version None)
Quarter: 2008Q2

REPORT INFORMATION
  Report Type: 
  Country: None (occurrence: None)
  Receive Date: 20080513
  Receipt Date: 20080505
  Transmission Date: 20081010
  Serious: Yes (Other)
  Sender: FDA-Public Use
  Company Number: US-AMGEN-US277598

PATIENT
  Sex: Female

DRUGS (1)
  1. VECTIBIX [Suspect]
     Indication: COLORECTAL CANCER
     Dates: start: 20080301

REACTIONS (3)
  - CARCINOEMBRYONIC ANTIGEN INCREASED [None]
  - RASH [None]
  - URINARY TRACT INFECTION [None]
